FAERS Safety Report 5589365-5 (Version None)
Quarter: 2008Q1

REPORT INFORMATION
  Report Type: 
  Country: None (occurrence: None)
  Receive Date: 20080114
  Receipt Date: 20080109
  Transmission Date: 20080703
  Serious: Yes (Life-Threatening, Hospitalization)
  Sender: FDA-Public Use
  Company Number: DE-NOVOPROD-263965

PATIENT
  Sex: Male
  Weight: 80 kg

DRUGS (14)
  1. NOVOSEVEN [Suspect]
     Indication: TRAUMATIC HAEMORRHAGE
     Dosage: 3 DOSES
     Route: 042
     Dates: start: 20070412, end: 20070412
  2. MIDAZOLAM HCL [Concomitant]
     Indication: SEDATION
     Dates: start: 20070412, end: 20070412
  3. MIDAZOLAM HCL [Concomitant]
     Dates: start: 20070412
  4. SUFENTANIL CITRATE [Concomitant]
     Indication: SEDATION
     Dates: start: 20070412, end: 20070412
  5. SUFENTANIL CITRATE [Concomitant]
     Dates: start: 20070412
  6. ATRACURIUM [Concomitant]
     Indication: FEELING OF RELAXATION
     Dates: start: 20070412, end: 20070412
  7. PROPOFOL [Concomitant]
     Indication: SEDATION
     Dates: start: 20070413
  8. NITRO                              /00003201/ [Concomitant]
     Indication: HYPERTONIA
     Dates: start: 20070412, end: 20070412
  9. SODIUM BICARBONATE [Concomitant]
     Dates: start: 20070412, end: 20070412
  10. INSULIN [Concomitant]
     Indication: HYPERGLYCAEMIA
     Dates: start: 20070412
  11. POTASSIUM CHLORIDE [Concomitant]
     Indication: ELECTROLYTE IMBALANCE
     Dates: start: 20070412, end: 20070412
  12. POTASSIUM [Concomitant]
     Indication: ELECTROLYTE IMBALANCE
     Dates: start: 20070412, end: 20070413
  13. LASIX [Concomitant]
     Indication: POLYURIA
     Dates: start: 20070412, end: 20070412
  14. NOVALGIN                           /00039501/ [Concomitant]
     Indication: PAIN MANAGEMENT
     Dates: start: 20070413, end: 20070413

REACTIONS (10)
  - ABDOMINAL COMPARTMENT SYNDROME [None]
  - CARDIAC ARREST [None]
  - HYPERCAPNIA [None]
  - HYPOVOLAEMIA [None]
  - LUNG INFECTION PSEUDOMONAL [None]
  - PLEURAL EFFUSION [None]
  - PNEUMONIA [None]
  - SINUSITIS [None]
  - SURGICAL PROCEDURE REPEATED [None]
  - UPPER RESPIRATORY TRACT INFECTION [None]
